FAERS Safety Report 5101867-4 (Version None)
Quarter: 2006Q3

REPORT INFORMATION
  Report Type: 
  Country: None (occurrence: None)
  Receive Date: 20060731
  Receipt Date: 20060522
  Transmission Date: 20061208
  Serious: No
  Sender: FDA-Public Use
  Company Number: 2006PV014234

PATIENT
  Age: 73 Year
  Sex: Male
  Weight: 99.7913 kg

DRUGS (9)
  1. BYETTA [Suspect]
     Indication: DIABETES MELLITUS NON-INSULIN-DEPENDENT
     Dosage: 5 MCG; BID; SC
     Route: 058
     Dates: start: 20060315
  2. METFORMIN HCL [Concomitant]
  3. TRANDOL [Concomitant]
  4. FLOMAX [Concomitant]
  5. HYZAAR [Concomitant]
  6. ASPIRIN [Concomitant]
  7. NEXIUM [Concomitant]
  8. TOPROL-XL [Concomitant]
  9. CARDIZEM [Concomitant]

REACTIONS (1)
  - CONTUSION [None]
